FAERS Safety Report 23190051 (Version 1)
Quarter: 2023Q4

REPORT INFORMATION
  Report Type: Spontaneous
  Country: PT (occurrence: PT)
  Receive Date: 20231116
  Receipt Date: 20231116
  Transmission Date: 20240109
  Serious: Yes (Other)
  Sender: FDA-Public Use
  Company Number: PT-INFARMED-T202310-874

PATIENT
  Age: 55 Year
  Sex: Female
  Weight: 74 kg

DRUGS (10)
  1. METFORMIN HYDROCHLORIDE [Interacting]
     Active Substance: METFORMIN HYDROCHLORIDE
     Indication: Diabetes mellitus
     Dosage: ?2 X DIA? (SEM INFORMA??O MAIS DETALHADA ? SABE-SE APENAS QUE A UTENTE TOMA ?H? ALGUNS ANOS^)
     Route: 048
  2. ESCITALOPRAM OXALATE [Interacting]
     Active Substance: ESCITALOPRAM OXALATE
     Indication: Product used for unknown indication
     Dosage: ?1XDIA?  (SEM INFORMA??O MAIS DETALHADA ? SABE-SE APENAS QUE A UTENTE TOMA ?H? ALGUNS ANOS^)
     Route: 048
  3. CYAMEMAZINE [Interacting]
     Active Substance: CYAMEMAZINE
     Indication: Insomnia
     Dosage: 100 MILLIGRAM, ONCE A DAY(^1 COMP 1XDIA^ - A DOENTE ^TOMA O TERCIAN DESDE O FINAL DE 2022^ (SEM INFO
     Route: 048
     Dates: start: 2022
  4. Levotiroxina aristo [Concomitant]
     Indication: Product used for unknown indication
     Dosage: UNK
     Route: 048
  5. ORAP FORTE [Concomitant]
     Indication: Product used for unknown indication
     Dosage: UNK
     Route: 048
  6. LORAZEPAM [Concomitant]
     Active Substance: LORAZEPAM
     Indication: Product used for unknown indication
     Dosage: UNK
     Route: 048
  7. PANTOPRAZOLE SODIUM [Concomitant]
     Active Substance: PANTOPRAZOLE SODIUM
     Indication: Product used for unknown indication
     Dosage: UNK
     Route: 048
  8. ESTAZOLAM [Concomitant]
     Active Substance: ESTAZOLAM
     Indication: Product used for unknown indication
     Dosage: UNK
     Route: 048
  9. QUETIAPINA BLUEPHARMA [Concomitant]
     Indication: Product used for unknown indication
     Dosage: UNK
     Route: 048
  10. FENOFIBRATE\PRAVASTATIN [Concomitant]
     Active Substance: FENOFIBRATE\PRAVASTATIN
     Indication: Product used for unknown indication
     Dosage: UNK
     Route: 048

REACTIONS (2)
  - Diarrhoea [Not Recovered/Not Resolved]
  - Drug interaction [Not Recovered/Not Resolved]

NARRATIVE: CASE EVENT DATE: 20230101
